FAERS Safety Report 10040932 (Version 2)
Quarter: 2014Q1

REPORT INFORMATION
  Report Type: Spontaneous
  Country: US (occurrence: US)
  Receive Date: 20140327
  Receipt Date: 20140327
  Transmission Date: 20141002
  Serious: Yes (Disabling)
  Sender: FDA-Public Use
  Company Number: US-GE HEALTHCARE MEDICAL DIAGNOSTICS-OSCN-PR-0908S-0398

PATIENT
  Sex: Male

DRUGS (6)
  1. OMNISCAN [Suspect]
     Indication: PRODUCT USED FOR UNKNOWN INDICATION
     Route: 042
     Dates: start: 20030724, end: 20030724
  2. OMNISCAN [Suspect]
     Route: 042
     Dates: start: 20030801, end: 20030801
  3. GADOLINIUM (UNSPECIFIED) [Suspect]
     Indication: PRODUCT USED FOR UNKNOWN INDICATION
     Dosage: UNSPECIFIED
     Route: 042
     Dates: start: 20010108, end: 20010108
  4. GADOLINIUM (UNSPECIFIED) [Suspect]
     Dosage: UNSPECIFIED
     Route: 042
     Dates: start: 20030731, end: 20030731
  5. GADOLINIUM (UNSPECIFIED) [Suspect]
     Route: 042
     Dates: start: 20020108, end: 20020108
  6. EPOGEN [Concomitant]

REACTIONS (1)
  - Nephrogenic systemic fibrosis [Not Recovered/Not Resolved]
